FAERS Safety Report 4304443-6 (Version None)
Quarter: 2004Q1

REPORT INFORMATION
  Report Type: 
  Country: None (occurrence: None)
  Receive Date: 20040224
  Receipt Date: 20040217
  Transmission Date: 20041129
  Serious: Yes (Life-Threatening)
  Sender: FDA-Public Use
  Company Number: 2004SE00813

PATIENT

DRUGS (4)
  1. BLOPRESS [Suspect]
  2. AMLODIPINE BESYLATE [Suspect]
  3. AMOBAN [Suspect]
  4. ALMARL [Suspect]

REACTIONS (1)
  - HEPATIC FUNCTION ABNORMAL [None]
